FAERS Safety Report 6692167-X (Version None)
Quarter: 2010Q2

REPORT INFORMATION
  Report Type: 
  Country: None (occurrence: None)
  Receive Date: 20100422
  Receipt Date: 20090413
  Transmission Date: 20101027
  Serious: No
  Sender: FDA-Public Use
  Company Number: US-ASTRAZENECA-2009UW09272

PATIENT
  Age: 70 Year
  Sex: Female
  Weight: 74.8 kg

DRUGS (2)
  1. TOPROL-XL [Suspect]
     Indication: TACHYCARDIA
     Route: 048
     Dates: start: 20040101
  2. VERAPAMIL [Concomitant]

REACTIONS (1)
  - COUGH [None]
